FAERS Safety Report 20946692 (Version 4)
Quarter: 2023Q2

REPORT INFORMATION
  Report Type: Spontaneous
  Country: US (occurrence: US)
  Receive Date: 20220610
  Receipt Date: 20230512
  Transmission Date: 20230722
  Serious: Yes (Death, Life-Threatening, Hospitalization, Other)
  Sender: FDA-Public Use
  Company Number: US-LUPIN PHARMACEUTICALS INC.-2022-08360

PATIENT
  Age: 34 Year
  Sex: Female
  Weight: 48.8 kg

DRUGS (11)
  1. HYDROMORPHONE [Suspect]
     Active Substance: HYDROMORPHONE
     Indication: Pain
     Dosage: UNK
     Route: 042
  2. OXYCODONE [Suspect]
     Active Substance: OXYCODONE
     Indication: Pain
     Dosage: UNK ( INTRAVENOUS INJECTION OF ORAL PRESCRIPTION MEDICATIONS)
     Route: 048
  3. OXYCODONE [Suspect]
     Active Substance: OXYCODONE
     Indication: Drug use disorder
     Dosage: UNK ADMINISTER THROUGH HER PERIPHERAL INTRAVENOUS LINE
     Route: 042
  4. DOXYCYCLINE [Suspect]
     Active Substance: DOXYCYCLINE
     Indication: Escherichia infection
     Dosage: UNK
     Route: 065
  5. DOXYCYCLINE [Suspect]
     Active Substance: DOXYCYCLINE
     Indication: Staphylococcal infection
  6. DOXYCYCLINE [Suspect]
     Active Substance: DOXYCYCLINE
     Indication: Sepsis
  7. POTASSIUM CHLORIDE [Suspect]
     Active Substance: POTASSIUM CHLORIDE
     Indication: Electrolyte imbalance
     Dosage: UNK
     Route: 065
  8. DIPHENHYDRAMINE [Suspect]
     Active Substance: DIPHENHYDRAMINE
     Indication: Pain
     Dosage: UNK ADMINISTER THROUGH HER PERIPHERAL INTRAVENOUS LINE
     Route: 042
  9. FLUCONAZOLE [Suspect]
     Active Substance: FLUCONAZOLE
     Indication: Candida infection
     Dosage: UNK
     Route: 065
  10. FLUCONAZOLE [Suspect]
     Active Substance: FLUCONAZOLE
     Indication: Sepsis
  11. SODIUM CHLORIDE [Suspect]
     Active Substance: SODIUM CHLORIDE
     Indication: Electrolyte imbalance
     Dosage: UNK
     Route: 065

REACTIONS (30)
  - Pulseless electrical activity [Fatal]
  - Secondary amyloidosis [Fatal]
  - Intentional product misuse [Fatal]
  - Wrong technique in product usage process [Fatal]
  - Escherichia infection [Fatal]
  - Staphylococcal infection [Fatal]
  - Candida infection [Fatal]
  - Sepsis [Fatal]
  - Electrolyte imbalance [Fatal]
  - Lung disorder [Fatal]
  - Granuloma [Fatal]
  - Myocarditis [Fatal]
  - Hypothyroidism [Fatal]
  - Incorrect route of product administration [Fatal]
  - Chronic kidney disease [Fatal]
  - Lactobacillus infection [Fatal]
  - Myelosuppression [Fatal]
  - Immune system disorder [Fatal]
  - Drug abuse [Fatal]
  - Bone marrow failure [Fatal]
  - Bacillus infection [Fatal]
  - Pseudomonas infection [Fatal]
  - Chronic kidney disease [Fatal]
  - Cardiac failure [Fatal]
  - Drug ineffective [Unknown]
  - Proteinuria [Unknown]
  - Nutritional condition abnormal [Unknown]
  - Abdominal infection [Unknown]
  - Fat necrosis [Unknown]
  - Cardiomegaly [Unknown]
